FAERS Safety Report 16371509 (Version 1)
Quarter: 2019Q2

REPORT INFORMATION
  Report Type: Spontaneous
  Country: US (occurrence: US)
  Receive Date: 20190424
  Receipt Date: 20190424
  Transmission Date: 20190711
  Serious: Yes (Hospitalization)
  Sender: FDA-Public Use
  Company Number: None

PATIENT
  Age: 52 Year
  Sex: Female
  Weight: 52.16 kg

DRUGS (9)
  1. ONDANSETRON [Concomitant]
     Active Substance: ONDANSETRON
  2. LASIX [Concomitant]
     Active Substance: FUROSEMIDE
  3. CAPECITABINE. [Concomitant]
     Active Substance: CAPECITABINE
  4. ALPRAZOLAM. [Concomitant]
     Active Substance: ALPRAZOLAM
  5. LAMOTRIGIRE [Concomitant]
  6. DOCUSATE [Concomitant]
     Active Substance: DOCUSATE
  7. PROCHLORPERAZINE. [Concomitant]
     Active Substance: PROCHLORPERAZINE
  8. POTASSIUM [Concomitant]
     Active Substance: POTASSIUM
  9. TYKERB [Suspect]
     Active Substance: LAPATINIB DITOSYLATE
     Indication: NEOPLASM MALIGNANT
     Route: 048
     Dates: start: 20181014

REACTIONS (1)
  - Transient ischaemic attack [None]
